FAERS Safety Report 7670014-7 (Version None)
Quarter: 2011Q3

REPORT INFORMATION
  Report Type: 
  Country: None (occurrence: None)
  Receive Date: 20110808
  Receipt Date: 20110726
  Transmission Date: 20111222
  Serious: Yes (Hospitalization)
  Sender: FDA-Public Use
  Company Number: IT-MYLANLABS-2011S1015382

PATIENT
  Age: 62 Year
  Sex: Female

DRUGS (3)
  1. VALPROIC ACID [Suspect]
     Indication: AFFECTIVE DISORDER
     Route: 065
  2. DISULFIRAM [Interacting]
     Indication: ALCOHOLISM
     Dosage: 400 MG/DAY
     Route: 065
  3. SODIUM OXYBATE [Interacting]
     Indication: ALCOHOLISM
     Dosage: 46 MG/KG/DAY
     Route: 065

REACTIONS (3)
  - CONVULSION [None]
  - HYPOMANIA [None]
  - DRUG INTERACTION [None]
